FAERS Safety Report 6566227-8 (Version None)
Quarter: 2010Q1

REPORT INFORMATION
  Report Type: 
  Country: None (occurrence: None)
  Receive Date: 20100202
  Receipt Date: 20100120
  Transmission Date: 20100710
  Serious: Yes (Death)
  Sender: FDA-Public Use
  Company Number: CH-PFIZER INC-2010007422

PATIENT
  Age: 38 Year
  Sex: Male

DRUGS (8)
  1. XANAX [Suspect]
     Dosage: 1.5 MG DAILY
     Route: 048
     Dates: start: 20091113, end: 20091115
  2. XANAX [Suspect]
     Dosage: 2.5 MG, 1X/DAY
     Route: 048
     Dates: start: 20091116
  3. VALIUM [Interacting]
     Dosage: UNK
     Route: 048
     Dates: end: 20091112
  4. VALIUM [Interacting]
     Dosage: 20 MG, 1X/DAY
     Route: 048
     Dates: start: 20091113, end: 20091115
  5. ABILIFY [Suspect]
     Dosage: 20 MG, 1X/DAY
     Route: 048
  6. METHADONE [Interacting]
     Dosage: 40 MG, 1X/DAY
     Route: 048
     Dates: end: 20091015
  7. METHADONE [Interacting]
     Dosage: 50 MG, 1X/DAY
     Route: 048
     Dates: start: 20091016
  8. SEROQUEL [Suspect]
     Dosage: UNK
     Route: 048
     Dates: start: 20091105

REACTIONS (3)
  - COMPLETED SUICIDE [None]
  - DRUG INTERACTION [None]
  - PAIN IN EXTREMITY [None]
